FAERS Safety Report 23312164 (Version 1)
Quarter: 2023Q4

REPORT INFORMATION
  Report Type: Spontaneous
  Country: US (occurrence: US)
  Receive Date: 20231219
  Receipt Date: 20231219
  Transmission Date: 20240110
  Serious: No
  Sender: FDA-Public Use
  Company Number: US-AMNEAL PHARMACEUTICALS-2023-AMRX-03659

PATIENT
  Age: 34 Year

DRUGS (1)
  1. ETHINYL ESTRADIOL\NORELGESTROMIN [Suspect]
     Active Substance: ETHINYL ESTRADIOL\NORELGESTROMIN
     Indication: Contraception
     Dosage: 150/35 MICROGRAM/DAY, APPLY ONE PATCH TO SKIN ONCE WEEKLY FOR 3 WEEKS, THEN LEAVE OFF FOR 1 WEEK.
     Route: 062
     Dates: start: 20230920

REACTIONS (3)
  - Product adhesion issue [Unknown]
  - Wrong technique in device usage process [Unknown]
  - No adverse event [Unknown]

NARRATIVE: CASE EVENT DATE: 20230920
